FAERS Safety Report 5403810-7 (Version None)
Quarter: 2007Q3

REPORT INFORMATION
  Report Type: 
  Country: None (occurrence: None)
  Receive Date: 20070802
  Receipt Date: 20070726
  Transmission Date: 20080115
  Serious: Yes (Other)
  Sender: FDA-Public Use
  Company Number: CA-AMGEN-US233479

PATIENT
  Sex: Female
  Weight: 62 kg

DRUGS (4)
  1. KINERET [Suspect]
     Indication: RHEUMATOID ARTHRITIS
     Route: 058
     Dates: start: 20010612
  2. METHOTREXATE [Concomitant]
     Route: 065
     Dates: start: 20000901
  3. GOLD [Concomitant]
     Route: 065
     Dates: start: 19960401
  4. CELEBREX [Concomitant]
     Route: 065
     Dates: start: 19990701

REACTIONS (2)
  - DRUG INEFFECTIVE [None]
  - RHEUMATOID ARTHRITIS [None]
